FAERS Safety Report 14198723 (Version 1)
Quarter: 2017Q4

REPORT INFORMATION
  Report Type: Spontaneous
  Country: US (occurrence: US)
  Receive Date: 20171117
  Receipt Date: 20171117
  Transmission Date: 20180321
  Serious: No
  Sender: FDA-Public Use
  Company Number: US-PFIZER INC-2017492413

PATIENT
  Age: 63 Year
  Sex: Male

DRUGS (1)
  1. NORPACE [Suspect]
     Active Substance: DISOPYRAMIDE PHOSPHATE
     Indication: HYPERTROPHIC CARDIOMYOPATHY
     Dosage: 100 MG, 4X/DAY
     Dates: start: 20171101

REACTIONS (2)
  - Drug effect incomplete [Unknown]
  - Product use in unapproved indication [Not Recovered/Not Resolved]

NARRATIVE: CASE EVENT DATE: 20171101
